FAERS Safety Report 22339021 (Version 2)
Quarter: 2023Q4

REPORT INFORMATION
  Report Type: Report from Study
  Country: BR (occurrence: BR)
  Receive Date: 20230518
  Receipt Date: 20231102
  Transmission Date: 20240110
  Serious: Yes (Other)
  Sender: FDA-Public Use
  Company Number: BR-JNJFOC-20230536142

PATIENT
  Age: 28 Year
  Sex: Female

DRUGS (1)
  1. REMICADE [Suspect]
     Active Substance: INFLIXIMAB
     Indication: Colitis ulcerative
     Route: 041
     Dates: start: 20210810

REACTIONS (2)
  - Intestinal stenosis [Recovered/Resolved]
  - Gastrointestinal inflammation [Unknown]

NARRATIVE: CASE EVENT DATE: 20220512
